FAERS Safety Report 11295465 (Version 1)
Quarter: 2015Q3

REPORT INFORMATION
  Report Type: Spontaneous
  Country: US (occurrence: US)
  Receive Date: 20150722
  Receipt Date: 20150722
  Transmission Date: 20151125
  Serious: No
  Sender: FDA-Public Use
  Company Number: US-ELI_LILLY_AND_COMPANY-US200808001734

PATIENT
  Age: 78 Year
  Sex: Female

DRUGS (17)
  1. PRILOSEC [Concomitant]
     Active Substance: OMEPRAZOLE MAGNESIUM
     Dosage: 20 MG, DAILY (1/D)
     Route: 065
  2. MACROBID [Concomitant]
     Active Substance: NITROFURANTOIN\NITROFURANTOIN MONOHYDRATE
     Dosage: 100 MG, 2/D
     Route: 065
     Dates: start: 20070914
  3. CENTRUM [Concomitant]
     Active Substance: VITAMINS
     Dosage: UNK, UNKNOWN
     Route: 065
  4. CITRUCEL [Concomitant]
     Active Substance: METHYLCELLULOSE (4000 MPA.S)
     Dosage: UNK, UNKNOWN
     Route: 065
  5. DALMANE [Concomitant]
     Active Substance: FLURAZEPAM HYDROCHLORIDE
     Dosage: 15 MG, AS NEEDED
     Route: 065
     Dates: start: 20080103
  6. CLARINEX [Concomitant]
     Active Substance: DESLORATADINE
     Dosage: UNK, AS NEEDED
     Route: 065
  7. NASONEX [Concomitant]
     Active Substance: MOMETASONE FUROATE
     Dosage: UNK, AS NEEDED
     Route: 065
  8. DALMANE [Concomitant]
     Active Substance: FLURAZEPAM HYDROCHLORIDE
     Dosage: 15 MG, AS NEEDED
     Route: 065
     Dates: start: 20061117
  9. CALCIUM [Concomitant]
     Active Substance: CALCIUM
     Dosage: UNK, UNKNOWN
     Route: 065
  10. EVISTA [Suspect]
     Active Substance: RALOXIFENE HYDROCHLORIDE
     Indication: OSTEOPOROSIS
     Dosage: 60 MG, DAILY (1/D)
     Dates: start: 20061127
  11. BENICAR [Concomitant]
     Active Substance: OLMESARTAN MEDOXOMIL
     Dosage: 10 MG, DAILY (1/D)
     Route: 065
  12. TIMOPTIC [Concomitant]
     Active Substance: TIMOLOL MALEATE
     Dosage: UNK, UNKNOWN
     Route: 065
  13. TRAZODONE [Concomitant]
     Active Substance: TRAZODONE HYDROCHLORIDE
     Dosage: UNK, UNKNOWN
     Route: 065
     Dates: end: 20080103
  14. ASPIRIN. [Concomitant]
     Active Substance: ASPIRIN
     Dosage: 325 MG, UNK
     Route: 065
  15. ANUSOL [Concomitant]
     Dosage: UNK, AS NEEDED
     Route: 065
     Dates: start: 20071116
  16. CITRACAL + D [Concomitant]
     Active Substance: CALCIUM CITRATE\VITAMIN D
     Dosage: UNK, DAILY (1/D)
     Route: 065
  17. ZETIA [Concomitant]
     Active Substance: EZETIMIBE
     Dosage: 10 MG, DAILY (1/D)
     Route: 065

REACTIONS (25)
  - Dermatitis [Unknown]
  - Abdominal pain upper [Unknown]
  - Haemorrhoids thrombosed [Unknown]
  - Weight decreased [Unknown]
  - Insomnia [Unknown]
  - Migraine [Not Recovered/Not Resolved]
  - Hyperlipidaemia [Unknown]
  - Gastrooesophageal reflux disease [Unknown]
  - Vaginal discharge [Not Recovered/Not Resolved]
  - Rash [Recovered/Resolved]
  - Dyspnoea [Unknown]
  - Temperature intolerance [Unknown]
  - Sinusitis [Unknown]
  - Constipation [Not Recovered/Not Resolved]
  - Appetite disorder [Unknown]
  - Anxiety [Unknown]
  - Pain in extremity [Unknown]
  - Xerosis [Unknown]
  - Hot flush [Not Recovered/Not Resolved]
  - Glaucoma [Unknown]
  - Pruritus generalised [Unknown]
  - Skin disorder [Unknown]
  - Atrophic vulvovaginitis [Unknown]
  - Diverticulum [Unknown]
  - Dry skin [Unknown]
